FAERS Safety Report 6294093-7 (Version None)
Quarter: 2009Q3

REPORT INFORMATION
  Report Type: 
  Country: None (occurrence: None)
  Receive Date: 20090803
  Receipt Date: 20081027
  Transmission Date: 20100115
  Serious: No
  Sender: FDA-Public Use
  Company Number: A0753829A

PATIENT
  Age: 71 Year
  Sex: Female

DRUGS (1)
  1. NICORETTE [Suspect]

REACTIONS (3)
  - DRY MOUTH [None]
  - GINGIVAL RECESSION [None]
  - INTENTIONAL DRUG MISUSE [None]
